FAERS Safety Report 25547204 (Version 1)
Quarter: 2025Q3

REPORT INFORMATION
  Report Type: Spontaneous
  Country: GB (occurrence: GB)
  Receive Date: 20250714
  Receipt Date: 20250714
  Transmission Date: 20251021
  Serious: Yes (Disabling, Other)
  Sender: TEVA
  Company Number: None

PATIENT
  Age: 33 Year
  Sex: Female

DRUGS (1)
  1. FAMOTIDINE [Suspect]
     Active Substance: FAMOTIDINE
     Indication: Product used for unknown indication
     Dosage: DAILY DOSAGE: 40MG; AT NIGHT
     Route: 065
     Dates: start: 20250317

REACTIONS (2)
  - Depression [Not Recovered/Not Resolved]
  - Depression suicidal [Not Recovered/Not Resolved]
